FAERS Safety Report 7511768-X (Version None)
Quarter: 2011Q2

REPORT INFORMATION
  Report Type: 
  Country: None (occurrence: None)
  Receive Date: 20110531
  Receipt Date: 20110520
  Transmission Date: 20111010
  Serious: Yes (Other)
  Sender: FDA-Public Use
  Company Number: US-JNJFOC-20090703707

PATIENT
  Sex: Female
  Weight: 56.7 kg

DRUGS (5)
  1. PHENAZOPYRIDINE HCL TAB [Concomitant]
     Indication: BLADDER PAIN
     Dosage: 20MG /TABLET/200MG/AS NEEDED
     Route: 048
  2. NEURONTIN [Concomitant]
     Indication: NEURALGIA
     Route: 048
     Dates: start: 20070101
  3. ELMIRON [Suspect]
     Indication: CYSTITIS INTERSTITIAL
     Route: 048
     Dates: start: 20080101
  4. ATARAX [Concomitant]
     Route: 065
  5. UNKNOWN MEDICATION [Concomitant]
     Route: 065

REACTIONS (5)
  - HAEMORRHOIDS [None]
  - INCORRECT DOSE ADMINISTERED [None]
  - GASTROINTESTINAL DISORDER [None]
  - CYSTITIS INTERSTITIAL [None]
  - ULCER [None]
